FAERS Safety Report 20018633 (Version 2)
Quarter: 2021Q4

REPORT INFORMATION
  Report Type: Spontaneous
  Country: US (occurrence: US)
  Receive Date: 20211101
  Receipt Date: 20211124
  Transmission Date: 20220303
  Serious: Yes (Death)
  Sender: FDA-Public Use
  Company Number: US-Clinigen Group PLC/ Clinigen Healthcare Ltd-US-CLGN-21-00564

PATIENT

DRUGS (1)
  1. ALDESLEUKIN [Suspect]
     Active Substance: ALDESLEUKIN
     Indication: Metastatic malignant melanoma
     Route: 040

REACTIONS (6)
  - Thrombocytopenia [Fatal]
  - Hypoxia [Fatal]
  - Acute respiratory failure [Fatal]
  - Supraventricular tachycardia [Fatal]
  - Ventricular tachycardia [Fatal]
  - Haemorrhage intracranial [Fatal]
